FAERS Safety Report 23260693 (Version 2)
Quarter: 2023Q4

REPORT INFORMATION
  Report Type: Spontaneous
  Country: JP (occurrence: JP)
  Receive Date: 20231205
  Receipt Date: 20231220
  Transmission Date: 20240109
  Serious: Yes (Other)
  Sender: FDA-Public Use
  Company Number: JP-BRISTOL-MYERS SQUIBB COMPANY-2023-174929

PATIENT
  Age: 76 Year
  Sex: Female

DRUGS (3)
  1. EMPLICITI [Suspect]
     Active Substance: ELOTUZUMAB
     Indication: Plasma cell myeloma
     Dosage: FROM APR-YEAR X, EPD X2
  2. POMALYST [Suspect]
     Active Substance: POMALIDOMIDE
     Indication: Plasma cell myeloma
     Dosage: FROM APR-YEAR X, EPD X2
  3. LENADEX [Suspect]
     Active Substance: DEXAMETHASONE ACETATE
     Indication: Plasma cell myeloma
     Dosage: FROM APR-YEAR X, EPD X2

REACTIONS (4)
  - Plasma cell myeloma recurrent [Unknown]
  - Bence Jones protein urine present [Unknown]
  - COVID-19 [Unknown]
  - Organising pneumonia [Unknown]
